FAERS Safety Report 5786452-3 (Version None)
Quarter: 2008Q2

REPORT INFORMATION
  Report Type: 
  Country: None (occurrence: None)
  Receive Date: 20080624
  Receipt Date: 20080616
  Transmission Date: 20081010
  Serious: Yes (Death)
  Sender: FDA-Public Use
  Company Number: US-ELI_LILLY_AND_COMPANY-US200806003648

PATIENT
  Age: 90 Year
  Sex: Female

DRUGS (1)
  1. HUMALOG [Suspect]

REACTIONS (1)
  - DEATH [None]
